FAERS Safety Report 16908854 (Version 1)
Quarter: 2019Q4

REPORT INFORMATION
  Report Type: Spontaneous
  Country: US (occurrence: US)
  Receive Date: 20190820
  Receipt Date: 20190820
  Transmission Date: 20200122
  Serious: Yes (Disabling, Other)
  Sender: FDA-Public Use
  Company Number: None

PATIENT
  Age: 69 Year
  Sex: Female
  Weight: 52.16 kg

DRUGS (1)
  1. LEVOFLOXACIN. [Suspect]
     Active Substance: LEVOFLOXACIN
     Indication: URINARY TRACT INFECTION
     Dosage: ?          QUANTITY:5 TOT - TOTAL;OTHER FREQUENCY:1 DAILY;?
     Route: 048
     Dates: start: 20190805, end: 20190808

REACTIONS (9)
  - Mental impairment [None]
  - Headache [None]
  - Neck pain [None]
  - Pain in extremity [None]
  - Vision blurred [None]
  - Arthralgia [None]
  - Tendon pain [None]
  - Gait disturbance [None]
  - Renal pain [None]

NARRATIVE: CASE EVENT DATE: 20190805
